FAERS Safety Report 4463435-7 (Version None)
Quarter: 2004Q3

REPORT INFORMATION
  Report Type: 
  Country: None (occurrence: None)
  Receive Date: 20040928
  Receipt Date: 20040915
  Transmission Date: 20050211
  Serious: Yes (Hospitalization, Other)
  Sender: FDA-Public Use
  Company Number: 209070

PATIENT
  Age: 42 Year
  Sex: Female

DRUGS (5)
  1. RITUXAN [Suspect]
     Indication: NON-HODGKIN'S LYMPHOMA
     Dosage: SEE IMAGE
     Dates: start: 20031001, end: 20031201
  2. RITUXAN [Suspect]
     Indication: NON-HODGKIN'S LYMPHOMA
     Dosage: SEE IMAGE
     Dates: start: 20040722
  3. GEMCITABINE (GEMCITABINE) [Suspect]
     Indication: NON-HODGKIN'S LYMPHOMA
     Dosage: 1950 MG
     Dates: start: 20040722
  4. OXALIPLATIN [Suspect]
     Indication: NON-HODGKIN'S LYMPHOMA
     Dates: start: 20040722
  5. NEULASTA [Suspect]
     Indication: NON-HODGKIN'S LYMPHOMA

REACTIONS (3)
  - PANCYTOPENIA [None]
  - PNEUMONIA [None]
  - PYREXIA [None]
